FAERS Safety Report 8397804 (Version 3)
Quarter: 2019Q3

REPORT INFORMATION
  Report Type: Report from Study
  Country: DE (occurrence: DE)
  Receive Date: 20120209
  Receipt Date: 20190807
  Transmission Date: 20191005
  Serious: Yes (Death, Hospitalization)
  Sender: FDA-Public Use
  Company Number: DE-JNJFOC-20120113634

PATIENT
  Age: 58 Year
  Sex: Male
  Weight: 77.6 kg

DRUGS (10)
  1. METHOTREXATE. [Concomitant]
     Active Substance: METHOTREXATE
     Route: 048
     Dates: start: 20110713
  2. SIMVASTATIN. [Concomitant]
     Active Substance: SIMVASTATIN
  3. PREDNISONE. [Concomitant]
     Active Substance: PREDNISONE
     Dates: start: 200005
  4. OMEPRAZOLE. [Concomitant]
     Active Substance: OMEPRAZOLE
  5. RAMIPRIL. [Concomitant]
     Active Substance: RAMIPRIL
  6. SIMPONI [Suspect]
     Active Substance: GOLIMUMAB
     Route: 058
     Dates: start: 201108
  7. METHOTREXATE. [Concomitant]
     Active Substance: METHOTREXATE
     Route: 048
     Dates: start: 200404, end: 20110626
  8. SIMPONI [Suspect]
     Active Substance: GOLIMUMAB
     Indication: RHEUMATOID ARTHRITIS
     Route: 058
     Dates: start: 201011, end: 20110622
  9. METHOTREXATE. [Concomitant]
     Active Substance: METHOTREXATE
     Route: 048
     Dates: start: 201105
  10. ALLOPURINOL. [Concomitant]
     Active Substance: ALLOPURINOL

REACTIONS (2)
  - Lung adenocarcinoma stage IV [Fatal]
  - Pneumonia [Recovered/Resolved]

NARRATIVE: CASE EVENT DATE: 20110623
